FAERS Safety Report 6604299-2 (Version None)
Quarter: 2010Q1

REPORT INFORMATION
  Report Type: 
  Country: None (occurrence: None)
  Receive Date: 20100226
  Receipt Date: 20090812
  Transmission Date: 20100710
  Serious: No
  Sender: FDA-Public Use
  Company Number: A0801885A

PATIENT
  Age: 57 Year
  Sex: Female

DRUGS (10)
  1. LAMICTAL CD [Suspect]
     Indication: BIPOLAR DISORDER
     Route: 048
     Dates: start: 20070501, end: 20090301
  2. LAMOTRIGINE [Suspect]
     Indication: BIPOLAR DISORDER
     Route: 048
     Dates: start: 20090301
  3. CYMBALTA [Concomitant]
  4. CLOMIPRAMINE HCL [Concomitant]
  5. SULFASALAZINE [Concomitant]
  6. METFORMIN HYDROCHLORIDE [Concomitant]
  7. ENALAPRIL MALEATE [Concomitant]
  8. GLIPIZIDE [Concomitant]
  9. PRAVASTATIN [Concomitant]
  10. CALCIUM [Concomitant]

REACTIONS (3)
  - AMNESIA [None]
  - DISTURBANCE IN ATTENTION [None]
  - JOB DISSATISFACTION [None]
